FAERS Safety Report 18292098 (Version 2)
Quarter: 2020Q3

REPORT INFORMATION
  Report Type: Report from Study
  Country: None (occurrence: US)
  Receive Date: 20200921
  Receipt Date: 20200928
  Transmission Date: 20201103
  Serious: Yes (Hospitalization)
  Sender: FDA-Public Use
  Company Number: US-ABBVIE-20K-163-3566417-00

PATIENT
  Age: 26 Year
  Sex: Female

DRUGS (1)
  1. ORILISSA [Suspect]
     Active Substance: ELAGOLIX SODIUM
     Indication: PRODUCT USED FOR UNKNOWN INDICATION
     Route: 048
     Dates: start: 20200823, end: 202009

REACTIONS (5)
  - Asthenia [Not Recovered/Not Resolved]
  - Seizure [Recovered/Resolved]
  - Menorrhagia [Not Recovered/Not Resolved]
  - Dizziness [Not Recovered/Not Resolved]
  - Seizure [Recovered/Resolved]

NARRATIVE: CASE EVENT DATE: 2020
